FAERS Safety Report 9727537 (Version 1)
Quarter: 2013Q4

REPORT INFORMATION
  Report Type: Other
  Country: GB (occurrence: GB)
  Receive Date: 20131203
  Receipt Date: 20131203
  Transmission Date: 20140711
  Serious: Yes (Life-Threatening)
  Sender: FDA-Public Use
  Company Number: GB-PERRIGO-13GB012137

PATIENT
  Age: 78 Year
  Sex: Female

DRUGS (6)
  1. IBUPROFEN 16028/0027 200 MG [Suspect]
     Indication: PAIN
     Dosage: UNK
     Route: 048
     Dates: start: 20131016, end: 20131020
  2. CODEINE [Suspect]
     Indication: PAIN
     Dosage: UNK
     Route: 048
     Dates: start: 20131014, end: 20131018
  3. LANSOPRAZOLE [Suspect]
     Indication: PAIN
     Dosage: 15 MG, QD
     Route: 048
     Dates: start: 20131016, end: 20131020
  4. FUROSEMIDE [Concomitant]
     Indication: OEDEMA PERIPHERAL
     Dosage: 40 MG, QD
     Route: 048
     Dates: start: 20131008, end: 20131021
  5. PARACETAMOL [Concomitant]
     Indication: PAIN
     Dosage: 1 G, PRN
     Route: 048
     Dates: start: 20131015
  6. SINEMET [Concomitant]
     Indication: PARKINSON^S DISEASE
     Dosage: 1 DF, TID
     Route: 048

REACTIONS (1)
  - Dermatitis exfoliative [Recovering/Resolving]
